FAERS Safety Report 10020440 (Version 1)
Quarter: 2014Q1

REPORT INFORMATION
  Report Type: Spontaneous
  Country: US (occurrence: US)
  Receive Date: 20140319
  Receipt Date: 20140319
  Transmission Date: 20141002
  Serious: No
  Sender: FDA-Public Use
  Company Number: US-BIOGENIDEC-2014BI022568

PATIENT
  Age: 42 Year
  Sex: Female

DRUGS (8)
  1. TECFIDERA [Suspect]
     Indication: MULTIPLE SCLEROSIS
     Route: 048
     Dates: start: 20140220
  2. TECFIDERA [Suspect]
     Indication: MULTIPLE SCLEROSIS
     Route: 048
  3. XANAX [Concomitant]
  4. BIOTIN [Concomitant]
  5. FOLIC ACID [Concomitant]
  6. CYANOCOBALAMIN [Concomitant]
  7. VITAMIN B-6 [Concomitant]
  8. VITAMIN D [Concomitant]

REACTIONS (5)
  - Anxiety [Not Recovered/Not Resolved]
  - Blood pressure increased [Not Recovered/Not Resolved]
  - Heart rate increased [Not Recovered/Not Resolved]
  - Extrasystoles [Not Recovered/Not Resolved]
  - Flushing [Recovered/Resolved]
